FAERS Safety Report 13957765 (Version 1)
Quarter: 2017Q3

REPORT INFORMATION
  Report Type: Spontaneous
  Country: US (occurrence: US)
  Receive Date: 20170911
  Receipt Date: 20170911
  Transmission Date: 20171128
  Serious: Yes (Other)
  Sender: FDA-Public Use
  Company Number: US-ROCHE-1090664

PATIENT
  Sex: Male

DRUGS (1)
  1. RITUXAN [Suspect]
     Active Substance: RITUXIMAB
     Indication: CHRONIC LYMPHOCYTIC LEUKAEMIA
     Route: 065

REACTIONS (7)
  - Arthralgia [Unknown]
  - Hypoaesthesia [Unknown]
  - Swelling [Unknown]
  - White blood cell count decreased [Unknown]
  - Pyrexia [Unknown]
  - Nerve injury [Unknown]
  - Chills [Unknown]
